FAERS Safety Report 7296476-5 (Version None)
Quarter: 2011Q1

REPORT INFORMATION
  Report Type: 
  Country: None (occurrence: None)
  Receive Date: 20110216
  Receipt Date: 20110203
  Transmission Date: 20110831
  Serious: Yes (Hospitalization, Other)
  Sender: FDA-Public Use
  Company Number: PHHY2011US08975

PATIENT
  Age: 60 Year
  Sex: Female

DRUGS (3)
  1. CARBOPLATIN [Suspect]
     Dosage: EVERY 3 WEEKS
  2. DOCETAXEL [Suspect]
     Dosage: EVERY 3 WEEKS
  3. TRASTUZUMAB [Suspect]
     Dosage: EVERY MONTH

REACTIONS (7)
  - NAUSEA [None]
  - PANCREATITIS ACUTE [None]
  - ABDOMINAL PAIN UPPER [None]
  - VOMITING [None]
  - PSEUDOCYST [None]
  - INFLAMMATION [None]
  - ABDOMINAL PAIN [None]
